FAERS Safety Report 7872257-6 (Version None)
Quarter: 2011Q4

REPORT INFORMATION
  Report Type: 
  Country: None (occurrence: None)
  Receive Date: 20111029
  Receipt Date: 20110316
  Transmission Date: 20120403
  Serious: No
  Sender: FDA-Public Use
  Company Number: US-AMGEN-USASP2011010657

PATIENT
  Age: 57 Year
  Sex: Female

DRUGS (3)
  1. ENBREL [Suspect]
  2. ENBREL [Suspect]
     Indication: PSORIATIC ARTHROPATHY
     Dosage: 50 MG, QWK
     Dates: start: 20030903
  3. ENBREL [Suspect]
     Indication: PSORIASIS
     Dates: start: 20030913

REACTIONS (10)
  - ARTHRITIS [None]
  - GAIT DISTURBANCE [None]
  - CONTUSION [None]
  - FOOT FRACTURE [None]
  - NAIL BED DISORDER [None]
  - DEFORMITY [None]
  - INJECTION SITE ERYTHEMA [None]
  - ONYCHOMADESIS [None]
  - FALL [None]
  - PAIN IN EXTREMITY [None]
